FAERS Safety Report 6649574-0 (Version None)
Quarter: 2010Q1

REPORT INFORMATION
  Report Type: 
  Country: None (occurrence: None)
  Receive Date: 20100324
  Receipt Date: 20100324
  Transmission Date: 20100710
  Serious: No
  Sender: FDA-Public Use
  Company Number: None

PATIENT
  Sex: Female
  Weight: 56.8 kg

DRUGS (2)
  1. LAMOTRIGINE [Suspect]
     Indication: EPILEPSY
     Dosage: 300MG. BID ORAL
     Route: 048
     Dates: start: 20091202
  2. TOPIRAMATE [Suspect]
     Indication: EPILEPSY
     Dosage: 15MG. DAILY ORAL
     Route: 048
     Dates: start: 20091202

REACTIONS (2)
  - CONVULSION [None]
  - PRODUCT SUBSTITUTION ISSUE [None]
